FAERS Safety Report 20131612 (Version 1)
Quarter: 2021Q4

REPORT INFORMATION
  Report Type: Report from Study
  Country: CA (occurrence: CA)
  Receive Date: 20211130
  Receipt Date: 20211130
  Transmission Date: 20220303
  Serious: Yes (Other)
  Sender: FDA-Public Use
  Company Number: CA-PFIZER INC-202101596167

PATIENT
  Age: 38 Year
  Sex: Female

DRUGS (15)
  1. RITUXIMAB [Suspect]
     Active Substance: RITUXIMAB
     Indication: Myelitis transverse
     Dosage: 1000 MG, 1 EVERY 15 DAYS
     Route: 042
  2. AMITRIPTYLINE [Concomitant]
     Active Substance: AMITRIPTYLINE
  3. BILASTINE [Concomitant]
     Active Substance: BILASTINE
     Indication: Urticaria
  4. CYCLOPHOSPHAMIDE [Concomitant]
     Active Substance: CYCLOPHOSPHAMIDE
  5. DEXAMETHASONE [Concomitant]
     Active Substance: DEXAMETHASONE
     Route: 065
  6. DIPHENHYDRAMINE HYDROCHLORIDE [Concomitant]
     Active Substance: DIPHENHYDRAMINE HYDROCHLORIDE
     Indication: Premedication
     Dosage: 50 MG
     Route: 042
  7. HYDROCORTISONE SODIUM SUCCINATE [Concomitant]
     Active Substance: HYDROCORTISONE SODIUM SUCCINATE
     Indication: Premedication
     Dosage: 125 MG
     Route: 042
  8. HYDROCORTISONE SODIUM SUCCINATE [Concomitant]
     Active Substance: HYDROCORTISONE SODIUM SUCCINATE
     Dosage: 100 MG
     Route: 042
  9. HYDROXYCHLOROQUINE SULFATE [Concomitant]
     Active Substance: HYDROXYCHLOROQUINE SULFATE
  10. METOPROLOL [Concomitant]
     Active Substance: METOPROLOL
     Indication: Tachycardia
  11. CROMOLYN SODIUM [Concomitant]
     Active Substance: CROMOLYN SODIUM
  12. OMALIZUMAB [Concomitant]
     Active Substance: OMALIZUMAB
     Dosage: 1 EVERY 4 WEEKS
     Route: 065
  13. PREVACID [Concomitant]
     Active Substance: LANSOPRAZOLE
  14. PROLIA [Concomitant]
     Active Substance: DENOSUMAB
     Indication: Osteoporosis
  15. SYNTHROID [Concomitant]
     Active Substance: LEVOTHYROXINE SODIUM
     Indication: Hypothyroidism

REACTIONS (2)
  - Stress cardiomyopathy [Unknown]
  - Vascular device infection [Unknown]
